FAERS Safety Report 15397412 (Version 1)
Quarter: 2018Q4

REPORT INFORMATION
  Report Type: Spontaneous
  Country: US (occurrence: US)
  Receive Date: 20180918
  Receipt Date: 20180918
  Transmission Date: 20190204
  Serious: Yes (Death, Hospitalization, Other)
  Sender: FDA-Public Use
  Company Number: US-ACELLA PHARMACEUTICALS, LLC-2055048

PATIENT
  Sex: Male

DRUGS (2)
  1. HYDROCODONE BITARTRATE AND CHLORPHENIRAMINE MALEATE [Suspect]
     Active Substance: CHLORPHENIRAMINE MALEATE\HYDROCODONE BITARTRATE
     Indication: DRUG ABUSER
     Route: 042
  2. PARACETAMOL (ACETAMINOPHEN) [Suspect]
     Active Substance: ACETAMINOPHEN
     Route: 042

REACTIONS (4)
  - Gastrointestinal haemorrhage [Fatal]
  - Air embolism [Fatal]
  - Generalised tonic-clonic seizure [Fatal]
  - Death [Fatal]
